FAERS Safety Report 21126823 (Version 1)
Quarter: 2022Q3

REPORT INFORMATION
  Report Type: Spontaneous
  Country: US (occurrence: None)
  Receive Date: 20220725
  Receipt Date: 20220725
  Transmission Date: 20221027
  Serious: Yes (Hospitalization)
  Sender: FDA-Public Use
  Company Number: None

PATIENT
  Sex: Female

DRUGS (11)
  1. AMBRISENTAN [Suspect]
     Active Substance: AMBRISENTAN
     Indication: Lung disorder
     Dosage: FREQUENCY : DAILY;?
     Route: 048
  2. TYVASO [Concomitant]
     Active Substance: TREPROSTINIL
  3. ATIVAN [Concomitant]
     Active Substance: LORAZEPAM
  4. FUROSEMIDE [Concomitant]
     Active Substance: FUROSEMIDE
  5. ALDACTONE [Concomitant]
     Active Substance: SPIRONOLACTONE
  6. ADCIRCA [Concomitant]
     Active Substance: TADALAFIL
  7. LETAIRIS [Concomitant]
     Active Substance: AMBRISENTAN
  8. UPTRAVI [Concomitant]
     Active Substance: SELEXIPAG
  9. LORAZEPAM [Concomitant]
     Active Substance: LORAZEPAM
  10. POTASSIUM [Concomitant]
     Active Substance: POTASSIUM
  11. ADCIRCA [Suspect]
     Active Substance: TADALAFIL

REACTIONS (4)
  - Neuropathy peripheral [None]
  - Fall [None]
  - Upper limb fracture [None]
  - Lower limb fracture [None]
